FAERS Safety Report 24971475 (Version 1)
Quarter: 2025Q1

REPORT INFORMATION
  Report Type: Spontaneous
  Country: US (occurrence: None)
  Receive Date: 20250214
  Receipt Date: 20250214
  Transmission Date: 20250408
  Serious: No
  Sender: ALEXION PHARMACEUTICALS
  Company Number: US-AstraZeneca-2001UW07999

PATIENT
  Age: 86 Year
  Weight: 65.5 kg

DRUGS (1)
  1. NEXIUM [Suspect]
     Active Substance: ESOMEPRAZOLE MAGNESIUM

REACTIONS (2)
  - Headache [Unknown]
  - Tinnitus [Not Recovered/Not Resolved]
